FAERS Safety Report 8811526 (Version 1)
Quarter: 2012Q4

REPORT INFORMATION
  Report Type: Spontaneous
  Country: US (occurrence: None)
  Receive Date: 20120926
  Receipt Date: 20120926
  Transmission Date: 20130627
  Serious: Yes (Hospitalization)
  Sender: FDA-Public Use
  Company Number: None

PATIENT
  Age: 11 Year
  Sex: Male
  Weight: 32.8 kg

DRUGS (1)
  1. HIZENTRA [Suspect]
     Dosage: 2g weekly sq
     Route: 058

REACTIONS (1)
  - Injection site cellulitis [None]
